FAERS Safety Report 7984007-3 (Version None)
Quarter: 2011Q4

REPORT INFORMATION
  Report Type: 
  Country: None (occurrence: None)
  Receive Date: 20111216
  Receipt Date: 20111206
  Transmission Date: 20120403
  Serious: Yes (Death, Hospitalization)
  Sender: FDA-Public Use
  Company Number: GB-PFIZER INC-2011102907

PATIENT
  Age: 64 Year
  Sex: Male

DRUGS (3)
  1. RAMIPRIL [Suspect]
     Indication: HYPERTENSION
     Dosage: 1.25 MG, 1X/DAY
     Route: 048
     Dates: start: 20110326, end: 20110420
  2. DOVOBET [Concomitant]
  3. BENDROFLUAZIDE [Concomitant]

REACTIONS (10)
  - SWOLLEN TONGUE [None]
  - HYPOXIC-ISCHAEMIC ENCEPHALOPATHY [None]
  - ANGIOEDEMA [None]
  - LIP SWELLING [None]
  - PARAESTHESIA ORAL [None]
  - RESPIRATORY TRACT OEDEMA [None]
  - CONVULSION [None]
  - LOCAL SWELLING [None]
  - HYPERSENSITIVITY [None]
  - HYPOXIA [None]
